FAERS Safety Report 8417440-6 (Version None)
Quarter: 2012Q2

REPORT INFORMATION
  Report Type: 
  Country: None (occurrence: None)
  Receive Date: 20120606
  Receipt Date: 20120531
  Transmission Date: 20120825
  Serious: Yes (Hospitalization)
  Sender: FDA-Public Use
  Company Number: PHHY2012FI047223

PATIENT
  Age: 1 Year
  Sex: Male

DRUGS (2)
  1. METFORMIN HCL [Suspect]
     Route: 048
  2. GALVUS [Suspect]
     Route: 048

REACTIONS (1)
  - ACCIDENTAL DRUG INTAKE BY CHILD [None]
